FAERS Safety Report 18624502 (Version 3)
Quarter: 2021Q1

REPORT INFORMATION
  Report Type: Report from Study
  Country: US (occurrence: US)
  Receive Date: 20201216
  Receipt Date: 20210310
  Transmission Date: 20210419
  Serious: Yes (Other)
  Sender: FDA-Public Use
  Company Number: US-ASTRAZENECA-2020SF65501

PATIENT
  Sex: Female

DRUGS (3)
  1. FASENRA [Suspect]
     Active Substance: BENRALIZUMAB
     Indication: EMPHYSEMA
     Dosage: 30MG/ML MONTHLY
     Route: 058
     Dates: start: 202011
  2. FASENRA [Suspect]
     Active Substance: BENRALIZUMAB
     Indication: ASTHMA
     Dosage: 30MG/ML MONTHLY
     Route: 058
     Dates: start: 202011
  3. FASENRA [Suspect]
     Active Substance: BENRALIZUMAB
     Indication: CHRONIC OBSTRUCTIVE PULMONARY DISEASE
     Dosage: 30MG/ML MONTHLY
     Route: 058
     Dates: start: 202011

REACTIONS (11)
  - Cognitive disorder [Unknown]
  - Cough [Unknown]
  - Feeling abnormal [Unknown]
  - Burning sensation [Unknown]
  - Dysphonia [Unknown]
  - Productive cough [Unknown]
  - Weight increased [Unknown]
  - Limb discomfort [Not Recovered/Not Resolved]
  - Oropharyngeal pain [Not Recovered/Not Resolved]
  - Agitation [Unknown]
  - Off label use [Unknown]
